FAERS Safety Report 23898499 (Version 2)
Quarter: 2024Q2

REPORT INFORMATION
  Report Type: Report from Study
  Country: US (occurrence: US)
  Receive Date: 20240525
  Receipt Date: 20240529
  Transmission Date: 20240716
  Serious: Yes (Hospitalization, Other)
  Sender: FDA-Public Use
  Company Number: US-ABBVIE-5772368

PATIENT
  Sex: Male

DRUGS (2)
  1. VENCLEXTA [Suspect]
     Active Substance: VENETOCLAX
     Indication: Myeloid leukaemia
     Route: 048
     Dates: end: 2024
  2. VENCLEXTA [Suspect]
     Active Substance: VENETOCLAX
     Indication: Myeloid leukaemia
     Route: 048
     Dates: start: 202404

REACTIONS (7)
  - Blindness [Unknown]
  - Blood pressure decreased [Unknown]
  - Pneumonia [Unknown]
  - Haemoglobin decreased [Unknown]
  - Decreased appetite [Unknown]
  - Loss of personal independence in daily activities [Unknown]
  - Deafness [Unknown]

NARRATIVE: CASE EVENT DATE: 20240101
